FAERS Safety Report 8275422-1 (Version None)
Quarter: 2012Q2

REPORT INFORMATION
  Report Type: 
  Country: None (occurrence: None)
  Receive Date: 20120411
  Receipt Date: 20120301
  Transmission Date: 20120825
  Serious: Yes (Death)
  Sender: FDA-Public Use
  Company Number: PHHY2011CA53867

PATIENT
  Sex: Female

DRUGS (3)
  1. SANDOSTATIN LAR [Suspect]
     Indication: NEUROENDOCRINE TUMOUR
     Dosage: 30 MG, QMO
     Route: 030
     Dates: start: 20110301
  2. SANDOSTATIN LAR [Suspect]
     Dosage: 30 MG, QMO
     Route: 030
     Dates: start: 20110606, end: 20120209
  3. RADIOTHERAPY [Concomitant]

REACTIONS (6)
  - DEATH [None]
  - FEELING ABNORMAL [None]
  - DIARRHOEA [None]
  - ARTHRALGIA [None]
  - SWELLING [None]
  - EATING DISORDER [None]
